FAERS Safety Report 17896501 (Version 1)
Quarter: 2020Q2

REPORT INFORMATION
  Report Type: Spontaneous
  Country: CN (occurrence: CN)
  Receive Date: 20200615
  Receipt Date: 20200615
  Transmission Date: 20200714
  Serious: Yes (Other)
  Sender: FDA-Public Use
  Company Number: CN-ROCHE-2615934

PATIENT
  Age: 57 Year
  Sex: Female
  Weight: 56 kg

DRUGS (20)
  1. HERCEPTIN [Suspect]
     Active Substance: TRASTUZUMAB
     Indication: BREAST CANCER METASTATIC
     Route: 041
     Dates: start: 20190918
  2. DOCETAXEL. [Concomitant]
     Active Substance: DOCETAXEL
     Dosage: DAY 1
     Route: 041
     Dates: start: 20191031
  3. HERCEPTIN [Suspect]
     Active Substance: TRASTUZUMAB
     Route: 041
     Dates: start: 20191031
  4. PERJETA [Suspect]
     Active Substance: PERTUZUMAB
     Route: 041
     Dates: start: 20191010
  5. CYCLOPHOSPHAMIDE. [Concomitant]
     Active Substance: CYCLOPHOSPHAMIDE
     Indication: BREAST CANCER METASTATIC
  6. EPIRUBICIN [Concomitant]
     Active Substance: EPIRUBICIN
     Indication: BREAST CANCER METASTATIC
  7. DOCETAXEL. [Concomitant]
     Active Substance: DOCETAXEL
     Dosage: DAY 1
     Route: 041
     Dates: start: 20191010
  8. DOCETAXEL. [Concomitant]
     Active Substance: DOCETAXEL
     Dosage: DAY 1
     Route: 041
     Dates: start: 20191121
  9. XELODA [Concomitant]
     Active Substance: CAPECITABINE
     Dosage: 1.0G (MORNING), 1.5G (EVENING), DAY 2- DAY 15
     Route: 048
     Dates: start: 20191121
  10. DOCETAXEL. [Concomitant]
     Active Substance: DOCETAXEL
     Indication: BREAST CANCER METASTATIC
     Dosage: DAY 1
     Route: 041
     Dates: start: 20190918
  11. LETROZOLE. [Concomitant]
     Active Substance: LETROZOLE
     Indication: BREAST CANCER METASTATIC
     Route: 048
     Dates: start: 20171001
  12. HERCEPTIN [Suspect]
     Active Substance: TRASTUZUMAB
     Route: 041
  13. PERJETA [Suspect]
     Active Substance: PERTUZUMAB
     Route: 041
     Dates: start: 20191031
  14. HERCEPTIN [Suspect]
     Active Substance: TRASTUZUMAB
     Route: 041
     Dates: start: 20191010
  15. XELODA [Concomitant]
     Active Substance: CAPECITABINE
     Dosage: 1.0G (MORNING), 1.5G (EVENING), DAY 2- DAY 15
     Route: 048
     Dates: start: 20191031
  16. HERCEPTIN [Suspect]
     Active Substance: TRASTUZUMAB
     Route: 041
     Dates: start: 20191121
  17. PERJETA [Suspect]
     Active Substance: PERTUZUMAB
     Indication: BREAST CANCER METASTATIC
     Route: 041
     Dates: start: 20190918
  18. PERJETA [Suspect]
     Active Substance: PERTUZUMAB
     Route: 041
     Dates: start: 20191121
  19. XELODA [Concomitant]
     Active Substance: CAPECITABINE
     Indication: BREAST CANCER METASTATIC
     Dosage: DAY 2-DAY 15
     Route: 048
     Dates: start: 20190918
  20. XELODA [Concomitant]
     Active Substance: CAPECITABINE
     Dosage: 1.0G (MORNING), 1.5G (EVENING), DAY 2- DAY 15
     Route: 048
     Dates: start: 20191010

REACTIONS (5)
  - Pyrexia [Recovered/Resolved]
  - Hepatic function abnormal [Recovered/Resolved]
  - Chills [Unknown]
  - Gastrointestinal disorder [Recovered/Resolved]
  - Bone marrow failure [Recovered/Resolved]
